FAERS Safety Report 23192027 (Version 1)
Quarter: 2023Q4

REPORT INFORMATION
  Report Type: Spontaneous
  Country: US (occurrence: None)
  Receive Date: 20231115
  Receipt Date: 20231115
  Transmission Date: 20240110
  Serious: Yes (Disabling)
  Sender: FDA-Public Use
  Company Number: None

PATIENT
  Age: 69 Year
  Sex: Male
  Weight: 107.55 kg

DRUGS (1)
  1. MULTI-ACTION RELIEF [Suspect]
     Active Substance: POLYVINYL ALCOHOL\POVIDONE\TETRAHYDROZOLINE HYDROCHLORIDE
     Indication: Ocular rosacea
     Dosage: OTHER QUANTITY : 1 DROP(S);?FREQUENCY : AS NEEDED;?
     Route: 047
     Dates: start: 20231102, end: 20231115

REACTIONS (2)
  - Ocular hyperaemia [None]
  - Eye pain [None]

NARRATIVE: CASE EVENT DATE: 20231105
